FAERS Safety Report 7626681-7 (Version None)
Quarter: 2011Q3

REPORT INFORMATION
  Report Type: 
  Country: None (occurrence: None)
  Receive Date: 20110721
  Receipt Date: 20110620
  Transmission Date: 20111222
  Serious: No
  Sender: FDA-Public Use
  Company Number: US-NOVEN-11US002654

PATIENT
  Sex: Female

DRUGS (1)
  1. FENTANYL [Suspect]
     Indication: PAIN
     Dosage: 100 UG, Q48H
     Route: 062
     Dates: start: 20110601, end: 20110620

REACTIONS (5)
  - LACRIMATION INCREASED [None]
  - PRODUCT QUALITY ISSUE [None]
  - YAWNING [None]
  - AFFECT LABILITY [None]
  - INADEQUATE ANALGESIA [None]
